FAERS Safety Report 4367199-7 (Version None)
Quarter: 2004Q2

REPORT INFORMATION
  Report Type: 
  Country: None (occurrence: None)
  Receive Date: 20040524
  Receipt Date: 20040513
  Transmission Date: 20050107
  Serious: Yes (Other)
  Sender: FDA-Public Use
  Company Number: US-JNJFOC-20040503108

PATIENT
  Sex: 0

DRUGS (1)
  1. ULTRACET [Suspect]
     Dosage: TRANSMAMMARY
     Route: 063

REACTIONS (2)
  - CYANOSIS [None]
  - DRUG EXPOSURE VIA BREAST MILK [None]
